FAERS Safety Report 14571929 (Version 3)
Quarter: 2018Q1

REPORT INFORMATION
  Report Type: Spontaneous
  Country: AU (occurrence: AU)
  Receive Date: 20180226
  Receipt Date: 20180321
  Transmission Date: 20180509
  Serious: Yes (Other)
  Sender: FDA-Public Use
  Company Number: PHHY2018AU028044

PATIENT
  Age: 66 Year
  Sex: Female

DRUGS (6)
  1. OLANZAPINE SANDOZ [Suspect]
     Active Substance: OLANZAPINE
     Indication: SLEEP DISORDER
  2. ZIMSTAT [Concomitant]
     Active Substance: SIMVASTATIN
     Indication: PRODUCT USED FOR UNKNOWN INDICATION
     Dosage: 20 MG, QD (IN THE EVENING)
     Route: 065
  3. THYROXIN [Concomitant]
     Active Substance: LEVOTHYROXINE
     Dosage: 100 UG, 4/7 IN A WEEK
     Route: 065
  4. IMOVANE [Concomitant]
     Active Substance: ZOPICLONE
     Indication: PRODUCT USED FOR UNKNOWN INDICATION
     Dosage: 7.5 MG, PRN
     Route: 065
  5. OLANZAPINE SANDOZ [Suspect]
     Active Substance: OLANZAPINE
     Indication: POST-TRAUMATIC STRESS DISORDER
     Dosage: 1 DF, QD (IN EVENING)
     Route: 048
     Dates: start: 2003
  6. THYROXIN [Concomitant]
     Active Substance: LEVOTHYROXINE
     Indication: PRODUCT USED FOR UNKNOWN INDICATION
     Dosage: 75 UG, 3/7 IN A WEEK
     Route: 065

REACTIONS (12)
  - Drug dependence [Not Recovered/Not Resolved]
  - Musculoskeletal stiffness [Not Recovered/Not Resolved]
  - Mood swings [Not Recovered/Not Resolved]
  - Feeling abnormal [Not Recovered/Not Resolved]
  - Urinary incontinence [Not Recovered/Not Resolved]
  - Road traffic accident [Unknown]
  - Product use in unapproved indication [Unknown]
  - Blood cholesterol increased [Unknown]
  - Pelvic prolapse [Unknown]
  - Hypertonic bladder [Unknown]
  - Headache [Not Recovered/Not Resolved]
  - Insomnia [Not Recovered/Not Resolved]

NARRATIVE: CASE EVENT DATE: 20151128
